FAERS Safety Report 12010298 (Version 1)
Quarter: 2016Q1

REPORT INFORMATION
  Report Type: Spontaneous
  Country: US (occurrence: None)
  Receive Date: 20160204
  Receipt Date: 20160204
  Transmission Date: 20160526
  Serious: Yes (Hospitalization)
  Sender: FDA-Public Use
  Company Number: None

PATIENT
  Age: 69 Year
  Sex: Male
  Weight: 120 kg

DRUGS (2)
  1. RITUXIMAB (MOABC2B8 ANTI CD20, CHIMERIC) [Suspect]
     Active Substance: RITUXIMAB
     Dates: end: 20150211
  2. BENDAMUSTINE HYDROCHLORIDE [Suspect]
     Active Substance: BENDAMUSTINE HYDROCHLORIDE
     Dates: end: 20150213

REACTIONS (8)
  - Endocarditis [None]
  - Pyrexia [None]
  - Loss of consciousness [None]
  - Agitation [None]
  - Streptococcus test positive [None]
  - Headache [None]
  - Haemodialysis [None]
  - Confusional state [None]

NARRATIVE: CASE EVENT DATE: 20150912
